FAERS Safety Report 6157349-4 (Version None)
Quarter: 2009Q2

REPORT INFORMATION
  Report Type: 
  Country: None (occurrence: None)
  Receive Date: 20090416
  Receipt Date: 20090331
  Transmission Date: 20091009
  Serious: Yes (Other)
  Sender: FDA-Public Use
  Company Number: US-BAYER-200911008BCC

PATIENT
  Age: 41 Year
  Sex: Female
  Weight: 113 kg

DRUGS (3)
  1. MIDOL [Suspect]
     Indication: BACK PAIN
     Route: 048
     Dates: start: 20030101, end: 20080901
  2. IBUPROFEN [Concomitant]
     Indication: ABDOMINAL DISTENSION
     Route: 065
  3. LEVOXYL [Concomitant]
     Indication: DRUG USE FOR UNKNOWN INDICATION
     Route: 065

REACTIONS (1)
  - SOMNOLENCE [None]
